FAERS Safety Report 7642616-5 (Version None)
Quarter: 2011Q3

REPORT INFORMATION
  Report Type: 
  Country: None (occurrence: None)
  Receive Date: 20110728
  Receipt Date: 20110719
  Transmission Date: 20111222
  Serious: Yes (Hospitalization, Disabling)
  Sender: FDA-Public Use
  Company Number: BR-ASTRAZENECA-2011SE43390

PATIENT
  Age: 61 Year
  Sex: Female
  Weight: 72 kg

DRUGS (5)
  1. SEROQUEL [Suspect]
     Indication: DEPRESSION
     Route: 048
     Dates: start: 20110601
  2. ATACAND [Suspect]
     Indication: HYPERTENSION
     Route: 048
     Dates: start: 20060101
  3. SEROQUEL [Suspect]
     Indication: ANXIETY
     Route: 048
     Dates: start: 20110601
  4. NEXIUM [Suspect]
     Indication: GASTRITIS
     Route: 048
     Dates: end: 20100101
  5. NEXIUM [Suspect]
     Route: 048
     Dates: start: 20100101

REACTIONS (9)
  - OFF LABEL USE [None]
  - HYPERCHOLESTEROLAEMIA [None]
  - ANXIETY [None]
  - DEPRESSION [None]
  - CEREBROVASCULAR ACCIDENT [None]
  - PARAESTHESIA [None]
  - MONOPARESIS [None]
  - SPEECH DISORDER [None]
  - INSOMNIA [None]
